FAERS Safety Report 18176689 (Version 1)
Quarter: 2020Q3

REPORT INFORMATION
  Report Type: Spontaneous
  Country: DE (occurrence: DE)
  Receive Date: 20200820
  Receipt Date: 20200820
  Transmission Date: 20201103
  Serious: Yes (Hospitalization)
  Sender: FDA-Public Use
  Company Number: DE-TEVA-2020-DE-1815727

PATIENT
  Age: 80 Year
  Sex: Male

DRUGS (13)
  1. KALINOR?RETARD P 600MG [Concomitant]
     Dosage: 1800 MILLIGRAM DAILY; 1?1?1?0
     Route: 048
  2. LEVEMIR [Concomitant]
     Active Substance: INSULIN DETEMIR
     Dosage: 16 IU (INTERNATIONAL UNIT) DAILY;  0?0?0?1
     Route: 058
  3. TAMSULOSIN [Concomitant]
     Active Substance: TAMSULOSIN
     Dosage: .4 MILLIGRAM DAILY; 0?0?1?0
     Route: 048
  4. COLECALCIFEROL (VITAMIN D) [Concomitant]
     Dosage: 20,000 IU , SUNDAYS
     Route: 048
  5. APIDRA [Concomitant]
     Active Substance: INSULIN GLULISINE
     Dosage: ACCORDING TO SCHEME
     Route: 058
  6. PANTOPRAZOL [Concomitant]
     Active Substance: PANTOPRAZOLE SODIUM
     Dosage: 40 MILLIGRAM DAILY; 1?0?0?0
     Route: 048
  7. L?THYROXIN JOD [Concomitant]
     Dosage: 1 DOSAGE FORMS DAILY; 150|75 UG, 1?0?0?0
     Route: 048
  8. TORASEMID [Concomitant]
     Active Substance: TORSEMIDE
     Dosage: 200 MILLIGRAM DAILY; 1?1?0?0
     Route: 048
  9. SIMVASTATIN. [Concomitant]
     Active Substance: SIMVASTATIN
     Dosage: 40 MILLIGRAM DAILY;  0?0?1?0
     Route: 048
  10. GABAPENTIN. [Concomitant]
     Active Substance: GABAPENTIN
     Dosage: 600 MILLIGRAM DAILY; 1?0?1?0
     Route: 048
  11. FEBUXOSTAT. [Concomitant]
     Active Substance: FEBUXOSTAT
     Dosage: 120 MILLIGRAM DAILY; 1?0?0?0
     Route: 048
  12. BISOPROLOL [Concomitant]
     Active Substance: BISOPROLOL
     Dosage: 5 MILLIGRAM DAILY;  0?1?0?0
     Route: 048
  13. CLOPIDOGREL [Suspect]
     Active Substance: CLOPIDOGREL BISULFATE
     Dosage: 75 MILLIGRAM DAILY;  0?1?0?0
     Route: 048

REACTIONS (4)
  - Syncope [Unknown]
  - Haemothorax [Unknown]
  - Cough [Unknown]
  - Dyspnoea [Unknown]
